FAERS Safety Report 22280550 (Version 2)
Quarter: 2023Q2

REPORT INFORMATION
  Report Type: Spontaneous
  Country: US (occurrence: US)
  Receive Date: 20230503
  Receipt Date: 20230614
  Transmission Date: 20230722
  Serious: Yes (Hospitalization)
  Sender: FDA-Public Use
  Company Number: US-BRISTOL-MYERS SQUIBB COMPANY-2023-062650

PATIENT
  Age: 86 Year
  Sex: Male
  Weight: 90.718 kg

DRUGS (1)
  1. ELIQUIS [Suspect]
     Active Substance: APIXABAN
     Indication: Cerebrovascular accident prophylaxis

REACTIONS (6)
  - Memory impairment [Not Recovered/Not Resolved]
  - COVID-19 [Unknown]
  - Amnesia [Not Recovered/Not Resolved]
  - Vertigo [Unknown]
  - Arthralgia [Unknown]
  - Migraine [Unknown]
